FAERS Safety Report 24640183 (Version 1)
Quarter: 2024Q4

REPORT INFORMATION
  Report Type: Spontaneous
  Country: NL (occurrence: NL)
  Receive Date: 20241120
  Receipt Date: 20241120
  Transmission Date: 20250114
  Serious: Yes (Hospitalization)
  Sender: ROCHE
  Company Number: None

PATIENT
  Age: 79 Year
  Sex: Male
  Weight: 92 kg

DRUGS (3)
  1. BEVACIZUMAB [Suspect]
     Active Substance: BEVACIZUMAB
     Indication: Rectal cancer metastatic
     Dosage: 7,5 MG/KG, IN TOTAAL 687,50 MG
     Route: 065
     Dates: start: 20240614
  2. CAPECITABINE [Suspect]
     Active Substance: CAPECITABINE
     Indication: Rectal cancer metastatic
     Dosage: 2 X PER DAG 5 STUKS VAN 500MG
     Route: 048
     Dates: start: 20240614
  3. HALOPERIDOL TABLET  1MG / Brand name not specified [Concomitant]
     Dosage: TABLET 1MG , 2 KEER PER DAG 1 STUK

REACTIONS (1)
  - Delirium [Recovering/Resolving]
